FAERS Safety Report 7531248 (Version 4)
Quarter: 2013Q1

REPORT INFORMATION
  Report Type: Spontaneous
  Country: US (occurrence: US)
  Receive Date: 20100806
  Receipt Date: 20130212
  Transmission Date: 20140127
  Serious: Yes (Other)
  Sender: FDA-Public Use
  Company Number: US-BAYER-201029555NA

PATIENT
  Age: 21 Year
  Sex: Female
  Weight: 91 kg

DRUGS (14)
  1. YAZ [Suspect]
     Dosage: UNK
     Dates: start: 2008, end: 2009
  2. OCELLA [Suspect]
     Dosage: UNK
     Route: 048
     Dates: start: 2008, end: 2009
  3. MOTRIN [Concomitant]
     Dosage: UNK
     Dates: start: 2005
  4. TRAZODONE [Concomitant]
  5. ZOLOFT [Concomitant]
  6. PREVACID [Concomitant]
  7. ADVAIR [Concomitant]
  8. CYMBALTA [Concomitant]
  9. MEPERIDINE [Concomitant]
  10. GEODON [Concomitant]
  11. ABILIFY [Concomitant]
  12. SERTRALINE [Concomitant]
  13. METRONIDAZOLE [Concomitant]
  14. DETROL LA [Concomitant]

REACTIONS (2)
  - Gallbladder disorder [Unknown]
  - Biliary dyskinesia [None]
